FAERS Safety Report 8965790 (Version 1)
Quarter: 2012Q4

REPORT INFORMATION
  Report Type: Spontaneous
  Country: US (occurrence: None)
  Receive Date: 20121206
  Receipt Date: 20121206
  Transmission Date: 20130627
  Serious: Yes (Other)
  Sender: FDA-Public Use
  Company Number: CIO12023724

PATIENT
  Sex: Female

DRUGS (1)
  1. CREST PRO-HEALTH RINSE [Suspect]
     Dosage: intraoral

REACTIONS (4)
  - Sialometaplasia [None]
  - Stomatitis necrotising [None]
  - Mouth ulceration [None]
  - Oral pain [None]
